FAERS Safety Report 6847929-2 (Version None)
Quarter: 2010Q3

REPORT INFORMATION
  Report Type: 
  Country: None (occurrence: None)
  Receive Date: 20100716
  Receipt Date: 20100706
  Transmission Date: 20110219
  Serious: Yes (Other)
  Sender: FDA-Public Use
  Company Number: US-PFIZER INC-2010049883

PATIENT
  Age: 58 Year
  Sex: Male
  Weight: 78.5 kg

DRUGS (6)
  1. VIAGRA [Suspect]
     Indication: ERECTILE DYSFUNCTION
     Dosage: UNK
  2. ALLOPURINOL [Concomitant]
     Dosage: UNK
  3. BACLOFEN [Concomitant]
     Dosage: UNK
  4. NORVASC [Concomitant]
     Dosage: UNK
  5. HYZAAR [Concomitant]
     Dosage: UNK
  6. LITHIUM [Concomitant]
     Dosage: UNK

REACTIONS (1)
  - RETINAL TEAR [None]
